FAERS Safety Report 19267031 (Version 3)
Quarter: 2024Q3

REPORT INFORMATION
  Report Type: Report from Study
  Country: BE (occurrence: BE)
  Receive Date: 20210517
  Receipt Date: 20240820
  Transmission Date: 20241016
  Serious: Yes (Hospitalization)
  Sender: PURDUE
  Company Number: BE-NAPPMUNDI-GBR-2021-0087159

PATIENT
  Age: 52 Year
  Sex: Female
  Weight: 85 kg

DRUGS (31)
  1. OXYCODONE HYDROCHLORIDE [Suspect]
     Active Substance: OXYCODONE HYDROCHLORIDE
     Indication: Abdominal pain lower
     Dosage: 10 MG, PRN
     Route: 048
     Dates: start: 202009
  2. OXYCODONE HYDROCHLORIDE [Suspect]
     Active Substance: OXYCODONE HYDROCHLORIDE
     Dosage: 5 MG, PRN
     Route: 048
     Dates: start: 202003, end: 20200929
  3. TISOTUMAB VEDOTIN [Suspect]
     Active Substance: TISOTUMAB VEDOTIN
     Indication: Cervix carcinoma
     Dosage: UNK
     Route: 065
     Dates: end: 20201130
  4. TISOTUMAB VEDOTIN [Suspect]
     Active Substance: TISOTUMAB VEDOTIN
     Dosage: UNK
     Route: 065
     Dates: end: 20201116
  5. TISOTUMAB VEDOTIN [Suspect]
     Active Substance: TISOTUMAB VEDOTIN
     Dosage: 2 MG/KG, 1Q3W
     Route: 042
     Dates: start: 20200928, end: 20201102
  6. CARBOPLATIN [Suspect]
     Active Substance: CARBOPLATIN
     Indication: Cervix carcinoma
     Dosage: 4 AUC, 1Q3W
     Route: 042
     Dates: start: 20201102, end: 20201102
  7. CARBOPLATIN [Suspect]
     Active Substance: CARBOPLATIN
     Dosage: 5 AUC, 1Q3W
     Route: 042
     Dates: start: 20200928, end: 20200928
  8. FENTANYL [Suspect]
     Active Substance: FENTANYL\FENTANYL CITRATE
     Indication: Abdominal pain lower
     Dosage: 50 MCG/HR, Q3D
     Route: 062
     Dates: start: 20201101
  9. FENTANYL [Suspect]
     Active Substance: FENTANYL\FENTANYL CITRATE
     Dosage: 75 MCG, Q3D
     Route: 062
     Dates: start: 20201014, end: 20201031
  10. FENTANYL [Suspect]
     Active Substance: FENTANYL\FENTANYL CITRATE
     Dosage: 50 MCG/HR, Q3D [EVERY 3 DAYS]
     Route: 062
     Dates: start: 20201009, end: 20201013
  11. FENTANYL [Suspect]
     Active Substance: FENTANYL\FENTANYL CITRATE
     Dosage: 37.5 MCG/HR, Q3D [EVERY 3 DAYS]
     Route: 062
     Dates: start: 20200928, end: 20201008
  12. FENTANYL [Suspect]
     Active Substance: FENTANYL\FENTANYL CITRATE
     Dosage: 25 MCG/HR, Q3D [EVERY 3 DAYS]
     Route: 062
     Dates: start: 202009, end: 20200927
  13. FENTANYL [Suspect]
     Active Substance: FENTANYL\FENTANYL CITRATE
     Dosage: 12.5 MCG/HR, Q3D [EVERY 3 DAYS]
     Route: 062
     Dates: start: 202003, end: 202009
  14. ACETAMINOPHEN [Concomitant]
     Active Substance: ACETAMINOPHEN
     Dosage: 1 G, DAILY
     Route: 042
     Dates: start: 20201009, end: 20201009
  15. ACETAMINOPHEN [Concomitant]
     Active Substance: ACETAMINOPHEN
     Dosage: UNK
     Dates: start: 202003
  16. PANTOPRAZOLE SODIUM [Concomitant]
     Active Substance: PANTOPRAZOLE SODIUM
     Indication: Product used for unknown indication
     Dosage: UNKNOWN
     Route: 065
     Dates: start: 202003, end: 20200929
  17. POLYETHYLENE GLYCOL 4000 [Concomitant]
     Active Substance: POLYETHYLENE GLYCOL 4000
     Indication: Constipation
     Dosage: 1 BAG, TID
     Route: 065
     Dates: start: 20201120
  18. POLYETHYLENE GLYCOL 4000 [Concomitant]
     Active Substance: POLYETHYLENE GLYCOL 4000
     Indication: Faecaloma
     Dosage: 1 BAG, BID
     Route: 048
     Dates: start: 20201005
  19. POLYETHYLENE GLYCOL 4000 [Concomitant]
     Active Substance: POLYETHYLENE GLYCOL 4000
     Indication: Prophylaxis
     Dosage: UNKNOWN
     Route: 065
     Dates: start: 20200923, end: 20201004
  20. OTILONIUM BROMIDE [Concomitant]
     Active Substance: OTILONIUM BROMIDE
     Dosage: UNK
     Dates: start: 20200921, end: 20200927
  21. BUTYLSCOPOLAMINE BROMIDE [Concomitant]
     Active Substance: BUTYLSCOPOLAMINE BROMIDE
     Indication: Product used for unknown indication
     Dosage: 10 MG, PRN
     Route: 048
     Dates: start: 20201118
  22. BUTYLSCOPOLAMINE BROMIDE [Concomitant]
     Active Substance: BUTYLSCOPOLAMINE BROMIDE
     Dosage: UNK
     Dates: start: 20200921, end: 20201101
  23. HYALURONATE SODIUM\TREHALOSE [Concomitant]
     Active Substance: HYALURONATE SODIUM\TREHALOSE
     Indication: Product used for unknown indication
     Dosage: UNK
     Dates: start: 20200928
  24. LITICAN                            /00690801/ [Concomitant]
     Indication: Product used for unknown indication
     Dosage: UNK
     Dates: start: 20201005
  25. MOVICOL [Concomitant]
     Active Substance: POLYETHYLENE GLYCOL 3350\POTASSIUM CHLORIDE\SODIUM BICARBONATE\SODIUM CHLORIDE
     Indication: Product used for unknown indication
     Dosage: UNK
     Route: 065
     Dates: end: 20200922
  26. DICLOFENAC [Concomitant]
     Active Substance: DICLOFENAC
     Indication: Product used for unknown indication
     Dosage: UNK
     Route: 065
     Dates: start: 20201013
  27. SODIUM PICOSULFATE [Concomitant]
     Active Substance: SODIUM PICOSULFATE
     Indication: Faecaloma
     Dosage: 12 DROP, DAILY, PRN
     Route: 048
     Dates: start: 20201013, end: 20201101
  28. SODIUM PICOSULFATE [Concomitant]
     Active Substance: SODIUM PICOSULFATE
     Indication: Constipation
  29. SODIUM PICOSULFATE [Concomitant]
     Active Substance: SODIUM PICOSULFATE
     Indication: Prophylaxis
  30. BEFACT                             /01525301/ [Concomitant]
     Indication: Product used for unknown indication
     Dosage: UNK
     Route: 065
     Dates: start: 20201019
  31. NEREYA [Concomitant]
     Indication: Product used for unknown indication
     Dosage: UNKNOWN
     Route: 065
     Dates: start: 20200921, end: 20200928

REACTIONS (2)
  - Faecaloma [Recovered/Resolved]
  - Faecaloma [Recovered/Resolved]

NARRATIVE: CASE EVENT DATE: 20201005
